FAERS Safety Report 9616428 (Version 2)
Quarter: 2014Q1

REPORT INFORMATION
  Report Type: Report from Study
  Country: US (occurrence: US)
  Receive Date: 20131011
  Receipt Date: 20140212
  Transmission Date: 20141002
  Serious: Yes (Other)
  Sender: FDA-Public Use
  Company Number: US-US-EMD SERONO, INC.-7242145

PATIENT
  Age: 45 Year
  Sex: Female

DRUGS (1)
  1. REBIF [Suspect]
     Indication: PRODUCT USED FOR UNKNOWN INDICATION
     Route: 058
     Dates: start: 20080213

REACTIONS (8)
  - Breast cancer [Recovered/Resolved]
  - Hot flush [Not Recovered/Not Resolved]
  - Drooling [Not Recovered/Not Resolved]
  - Sensation of heaviness [Recovering/Resolving]
  - Peroneal nerve palsy [Not Recovered/Not Resolved]
  - Muscle spasms [Not Recovered/Not Resolved]
  - Injection site bruising [Not Recovered/Not Resolved]
  - Injection site erythema [Recovering/Resolving]
